FAERS Safety Report 9588719 (Version 1)
Quarter: 2013Q4

REPORT INFORMATION
  Report Type: Spontaneous
  Country: US (occurrence: US)
  Receive Date: 20131003
  Receipt Date: 20131003
  Transmission Date: 20140711
  Serious: No
  Sender: FDA-Public Use
  Company Number: US-AMGEN-USASP2012065787

PATIENT
  Age: 54 Year
  Sex: Female

DRUGS (1)
  1. ENBREL [Suspect]
     Indication: PSORIATIC ARTHROPATHY
     Dosage: 50 MG, QWK, PATIENT NOT TAKING ENBREL AS PRESCRIBED. SHE IS TAKING WHENEVER HER FEET HURT
     Dates: start: 20100722

REACTIONS (2)
  - Hepatic steatosis [Recovered/Resolved]
  - Pain in extremity [Recovered/Resolved]
